FAERS Safety Report 8560995-1 (Version None)
Quarter: 2012Q3

REPORT INFORMATION
  Report Type: 
  Country: None (occurrence: None)
  Receive Date: 20120727
  Receipt Date: 20120727
  Transmission Date: 20120928
  Serious: Yes (Hospitalization)
  Sender: FDA-Public Use
  Company Number: None

PATIENT
  Age: 61 Year
  Sex: Female
  Weight: 55.8 kg

DRUGS (4)
  1. PRILOSEC [Concomitant]
  2. ASPIRIN [Suspect]
     Indication: MITRAL VALVE DISEASE
     Dosage: 81MG DAILY PO CHRONIC
     Route: 048
  3. DIGOXIN [Concomitant]
  4. WARFARIN SODIUM [Suspect]
     Indication: ATRIAL FIBRILLATION
     Dosage: 5MG DAILY PO CHRONIC
     Route: 048

REACTIONS (3)
  - INTERNATIONAL NORMALISED RATIO INCREASED [None]
  - RECTAL HAEMORRHAGE [None]
  - MOUTH HAEMORRHAGE [None]
